FAERS Safety Report 7032501-4 (Version None)
Quarter: 2010Q4

REPORT INFORMATION
  Report Type: 
  Country: None (occurrence: None)
  Receive Date: 20101004
  Receipt Date: 20100924
  Transmission Date: 20110411
  Serious: Yes (Other)
  Sender: FDA-Public Use
  Company Number: 019321

PATIENT
  Age: 18 Year

DRUGS (1)
  1. LEVETIRACETAM [Suspect]
     Indication: TOURETTE'S DISORDER
     Dosage: (250 MG), (TITRATED OVER THREE WEEKS TO 1000 TO 2000MG/D)

REACTIONS (2)
  - ABNORMAL BEHAVIOUR [None]
  - CONDITION AGGRAVATED [None]
